FAERS Safety Report 22086755 (Version 1)
Quarter: 2023Q1

REPORT INFORMATION
  Report Type: Spontaneous
  Country: CN (occurrence: CN)
  Receive Date: 20230312
  Receipt Date: 20230312
  Transmission Date: 20230418
  Serious: Yes (Life-Threatening, Other)
  Sender: FDA-Public Use
  Company Number: CN-002147023-NVSC2023CN055913

PATIENT
  Age: 92 Year
  Sex: Female
  Weight: 45 kg

DRUGS (5)
  1. SACUBITRIL\VALSARTAN [Suspect]
     Active Substance: SACUBITRIL\VALSARTAN
     Indication: Cardiac failure
     Dosage: 25 MG, BID
     Route: 048
     Dates: start: 20230227, end: 20230308
  2. SPIRONOLACTONE [Suspect]
     Active Substance: SPIRONOLACTONE
     Indication: Cardiac failure
     Dosage: 20 MG, QD
     Route: 048
     Dates: start: 20220222, end: 20230307
  3. SPIRONOLACTONE [Suspect]
     Active Substance: SPIRONOLACTONE
     Indication: Polyuria
  4. FUROSEMIDE [Concomitant]
     Active Substance: FUROSEMIDE
     Indication: Polyuria
     Dosage: UNK
     Route: 042
  5. CALCIUM GLUCONATE [Concomitant]
     Active Substance: CALCIUM GLUCONATE
     Indication: Cardiomyopathy
     Dosage: UNK
     Route: 065

REACTIONS (9)
  - Hyperkalaemia [Recovering/Resolving]
  - Cardiac failure [Unknown]
  - Hepatic failure [Unknown]
  - Acute coronary syndrome [Unknown]
  - Congestive hepatopathy [Unknown]
  - Acute kidney injury [Unknown]
  - Chest discomfort [Unknown]
  - Disease progression [Unknown]
  - Heart rate decreased [Unknown]

NARRATIVE: CASE EVENT DATE: 20230307
